FAERS Safety Report 24809263 (Version 2)
Quarter: 2025Q1

REPORT INFORMATION
  Report Type: Spontaneous
  Country: DZ (occurrence: DZ)
  Receive Date: 20250106
  Receipt Date: 20250205
  Transmission Date: 20250408
  Serious: No
  Sender: TOLMAR
  Company Number: DZ-RECORDATI-2024009582

PATIENT
  Age: 68 Year
  Sex: Male

DRUGS (4)
  1. ELIGARD [Suspect]
     Active Substance: LEUPROLIDE ACETATE
     Indication: Hormone-dependent prostate cancer
     Route: 058
     Dates: start: 20241015
  2. ELIGARD [Suspect]
     Active Substance: LEUPROLIDE ACETATE
     Dates: start: 20240623
  3. ELIGARD [Suspect]
     Active Substance: LEUPROLIDE ACETATE
     Dates: start: 20250120
  4. ELIGARD [Suspect]
     Active Substance: LEUPROLIDE ACETATE
     Indication: Hormone-dependent prostate cancer

REACTIONS (6)
  - Product preparation error [Unknown]
  - Incorrect dose administered by device [Unknown]
  - Product reconstitution quality issue [Unknown]
  - Syringe issue [Unknown]
  - Device leakage [Unknown]
  - Needle issue [Unknown]

NARRATIVE: CASE EVENT DATE: 20241015
